FAERS Safety Report 4532963-8 (Version None)
Quarter: 2004Q4

REPORT INFORMATION
  Report Type: 
  Country: None (occurrence: None)
  Receive Date: 20041206
  Receipt Date: 20041008
  Transmission Date: 20050328
  Serious: No
  Sender: FDA-Public Use
  Company Number: USA041080671

PATIENT
  Age: 49 Year
  Sex: Female

DRUGS (6)
  1. CYMBALTA [Suspect]
     Indication: ANXIETY
     Dosage: 60 MG DAY
     Dates: start: 20040901
  2. CYMBALTA [Suspect]
     Indication: DEPRESSION
     Dosage: 60 MG DAY
     Dates: start: 20040901
  3. CYMBALTA [Suspect]
     Indication: OBSESSIVE-COMPULSIVE DISORDER
     Dosage: 60 MG DAY
     Dates: start: 20040901
  4. KLONOPIN [Concomitant]
  5. TRAZODONE [Concomitant]
  6. HORMONE REPLACEMENT THERAPY [Concomitant]

REACTIONS (5)
  - APHTHOUS STOMATITIS [None]
  - CONSTIPATION [None]
  - EMOTIONAL DISTRESS [None]
  - NIGHTMARE [None]
  - PAIN [None]
